FAERS Safety Report 15660520 (Version 1)
Quarter: 2018Q4

REPORT INFORMATION
  Report Type: Spontaneous
  Country: US (occurrence: US)
  Receive Date: 20181115
  Receipt Date: 20181115
  Transmission Date: 20190205
  Serious: Yes (Other)
  Sender: FDA-Public Use
  Company Number: None

PATIENT
  Age: 59 Year
  Sex: Female
  Weight: 119.25 kg

DRUGS (14)
  1. OTEZLA [Concomitant]
     Active Substance: APREMILAST
  2. TYLENOL [Concomitant]
     Active Substance: ACETAMINOPHEN
  3. RANITIDINE. [Suspect]
     Active Substance: RANITIDINE
     Indication: GASTROOESOPHAGEAL REFLUX DISEASE
     Dosage: ?          QUANTITY:1 DF DOSAGE FORM;?
     Route: 048
     Dates: start: 20181109, end: 20181114
  4. HCTZ [Concomitant]
     Active Substance: HYDROCHLOROTHIAZIDE
  5. RANITIDINE. [Suspect]
     Active Substance: RANITIDINE
     Indication: OESOPHAGEAL SPASM
     Dosage: ?          QUANTITY:1 DF DOSAGE FORM;?
     Route: 048
     Dates: start: 20181109, end: 20181114
  6. ALDACTONE [Concomitant]
     Active Substance: SPIRONOLACTONE
  7. PANTOPROZOL [Concomitant]
  8. DILTIAZEM. [Concomitant]
     Active Substance: DILTIAZEM
  9. NAPROXIN [Concomitant]
     Active Substance: NAPROXEN
  10. CALCIUM [Concomitant]
     Active Substance: CALCIUM
  11. METFORMIN [Concomitant]
     Active Substance: METFORMIN HYDROCHLORIDE
  12. TRAMADOL. [Concomitant]
     Active Substance: TRAMADOL
  13. VITAMIN D [Concomitant]
     Active Substance: CHOLECALCIFEROL
  14. PEPCID [Concomitant]
     Active Substance: FAMOTIDINE

REACTIONS (1)
  - Urticaria [None]

NARRATIVE: CASE EVENT DATE: 20181114
